FAERS Safety Report 20734534 (Version 1)
Quarter: 2022Q2

REPORT INFORMATION
  Report Type: Report from Study
  Country: KR (occurrence: None)
  Receive Date: 20220421
  Receipt Date: 20220421
  Transmission Date: 20220721
  Serious: Yes (Hospitalization)
  Sender: FDA-Public Use
  Company Number: KR-ROCHE-3078399

PATIENT
  Age: 69 Year
  Sex: Male
  Weight: 59 kg

DRUGS (29)
  1. ATEZOLIZUMAB [Suspect]
     Active Substance: ATEZOLIZUMAB
     Indication: Oesophageal squamous cell carcinoma metastatic
     Dosage: ON 23/NOV/2021, STARTED MOST RECENT DOSE OF ATEZOLIZUMAB IS 1200 MG PRIOR TO AE
     Route: 041
     Dates: start: 20210222
  2. TIRAGOLUMAB [Suspect]
     Active Substance: TIRAGOLUMAB
     Indication: Oesophageal squamous cell carcinoma metastatic
     Dosage: ON 23/NOV/2021, STARTED MOST RECENT DOSE OF TIRAGOLUMAB IS 600 MG PRIOR TO AE
     Route: 042
     Dates: start: 20210222
  3. PACLITAXEL [Suspect]
     Active Substance: PACLITAXEL
     Indication: Oesophageal squamous cell carcinoma metastatic
     Dosage: ON 09/JUN/2021, STARTED MOST RECENT DOSE OF STUDY DRUG IS 222.9 MG PRIOR TO AE
     Route: 042
     Dates: start: 20210222
  4. CISPLATIN [Suspect]
     Active Substance: CISPLATIN
     Indication: Oesophageal squamous cell carcinoma metastatic
     Dosage: ON 09/JUN/2021, STARTED MOST RECENT DOSE OF CISPLATIN IS 76.5 MG PRIOR TO AE
     Route: 042
     Dates: start: 20210222
  5. ATORVASTATIN [Concomitant]
     Active Substance: ATORVASTATIN
     Indication: Hyperlipidaemia
     Route: 048
  6. CLOPIDOGREL [Concomitant]
     Active Substance: CLOPIDOGREL BISULFATE
     Indication: Cerebral arteriosclerosis
     Route: 048
     Dates: start: 20210225
  7. LACTICARE HC [Concomitant]
     Indication: Rash
     Route: 062
     Dates: start: 20210317
  8. METHYLPREDNISOLONE [Concomitant]
     Active Substance: METHYLPREDNISOLONE
     Indication: Rash
     Route: 062
     Dates: start: 20210317
  9. TRAMADOL [Concomitant]
     Active Substance: TRAMADOL
     Indication: Myalgia
     Route: 048
     Dates: start: 20210518
  10. HYDROCORTISONE [Concomitant]
     Active Substance: HYDROCORTISONE
     Indication: Rash
     Route: 061
     Dates: start: 20210810
  11. EBASTINE [Concomitant]
     Active Substance: EBASTINE
     Indication: Rash
     Route: 048
     Dates: start: 20211103
  12. LANSOPRAZOLE [Concomitant]
     Active Substance: LANSOPRAZOLE
     Indication: Gastritis
     Route: 048
     Dates: start: 20211124
  13. LOPERAMIDE [Concomitant]
     Active Substance: LOPERAMIDE
     Indication: Diarrhoea
     Route: 048
     Dates: start: 20220104, end: 20220125
  14. CEFEPIME [Concomitant]
     Active Substance: CEFEPIME HYDROCHLORIDE
     Indication: Infection prophylaxis
     Route: 042
     Dates: start: 20220118, end: 20220124
  15. MORPHINE SULFATE [Concomitant]
     Active Substance: MORPHINE SULFATE
     Route: 042
     Dates: start: 20220119, end: 20220119
  16. COOLPREP [Concomitant]
     Dosage: 1 OTHER
     Route: 048
     Dates: start: 20220119, end: 20220120
  17. CIMETROPIUM [Concomitant]
     Active Substance: CIMETROPIUM
     Indication: Abdominal pain upper
     Route: 042
     Dates: start: 20220120, end: 20220120
  18. HALOPERIDOL [Concomitant]
     Active Substance: HALOPERIDOL
     Indication: Delirium
     Route: 030
     Dates: start: 20220120, end: 20220120
  19. HALOPERIDOL [Concomitant]
     Active Substance: HALOPERIDOL
     Route: 030
     Dates: start: 20220121, end: 20220121
  20. HALOPERIDOL [Concomitant]
     Active Substance: HALOPERIDOL
     Route: 042
     Dates: start: 20220121, end: 20220121
  21. QUETIAPINE [Concomitant]
     Active Substance: QUETIAPINE
     Indication: Delirium
     Route: 048
     Dates: start: 20220120, end: 20220127
  22. QUETIAPINE [Concomitant]
     Active Substance: QUETIAPINE
     Route: 048
     Dates: start: 20220121, end: 20220127
  23. MONTMORILLONITE [Concomitant]
     Active Substance: MONTMORILLONITE
     Indication: Colitis
     Route: 048
     Dates: start: 20220121, end: 20220127
  24. MONTMORILLONITE [Concomitant]
     Active Substance: MONTMORILLONITE
     Route: 048
     Dates: start: 20220121
  25. SULFAMETHOXAZOLE\TRIMETHOPRIM [Concomitant]
     Active Substance: SULFAMETHOXAZOLE\TRIMETHOPRIM
     Route: 042
     Dates: start: 20220125, end: 20220127
  26. PREDNISOLONE [Concomitant]
     Active Substance: PREDNISOLONE
     Indication: Colitis
     Route: 048
     Dates: start: 20220127, end: 20220202
  27. PREDNISOLONE [Concomitant]
     Active Substance: PREDNISOLONE
     Route: 048
     Dates: start: 20220203, end: 20220212
  28. PREDNISOLONE [Concomitant]
     Active Substance: PREDNISOLONE
     Route: 048
     Dates: start: 20220213, end: 20220219
  29. PREDNISOLONE [Concomitant]
     Active Substance: PREDNISOLONE
     Route: 048
     Dates: start: 20220220, end: 20220226

REACTIONS (1)
  - Adrenal insufficiency [Not Recovered/Not Resolved]

NARRATIVE: CASE EVENT DATE: 20220120
